FAERS Safety Report 13636206 (Version 1)
Quarter: 2017Q2

REPORT INFORMATION
  Report Type: Spontaneous
  Country: US (occurrence: US)
  Receive Date: 20170531
  Receipt Date: 20170531
  Transmission Date: 20170830
  Serious: No
  Sender: FDA-Public Use
  Company Number: US-ASTELLAS-1795053

PATIENT
  Age: 69 Year
  Sex: Female

DRUGS (16)
  1. TRIAZOLAM. [Concomitant]
     Active Substance: TRIAZOLAM
  2. TRIAZOLAM. [Concomitant]
     Active Substance: TRIAZOLAM
  3. LOSARTAN. [Concomitant]
     Active Substance: LOSARTAN
  4. TARCEVA [Suspect]
     Active Substance: ERLOTINIB HYDROCHLORIDE
     Indication: LUNG NEOPLASM MALIGNANT
     Route: 048
     Dates: start: 20160714
  5. SIMVASTATIN. [Concomitant]
     Active Substance: SIMVASTATIN
  6. AVASTIN [Suspect]
     Active Substance: BEVACIZUMAB
     Indication: PRODUCT USED FOR UNKNOWN INDICATION
     Route: 065
  7. NEULASTA [Concomitant]
     Active Substance: PEGFILGRASTIM
  8. KEFLEX [Concomitant]
     Active Substance: CEPHALEXIN
  9. DEXAMETHASONE. [Concomitant]
     Active Substance: DEXAMETHASONE
  10. FISH OIL [Concomitant]
     Active Substance: FISH OIL
  11. XGEVA [Concomitant]
     Active Substance: DENOSUMAB
     Route: 065
  12. ONDANSETRON [Concomitant]
     Active Substance: ONDANSETRON
  13. XANAX [Concomitant]
     Active Substance: ALPRAZOLAM
  14. NORCO [Concomitant]
     Active Substance: ACETAMINOPHEN\HYDROCODONE BITARTRATE
  15. PROCHLORPERAZINE. [Concomitant]
     Active Substance: PROCHLORPERAZINE
  16. CONCERTA [Concomitant]
     Active Substance: METHYLPHENIDATE HYDROCHLORIDE

REACTIONS (2)
  - Accidental overdose [Unknown]
  - Confusional state [Unknown]

NARRATIVE: CASE EVENT DATE: 20160714
